FAERS Safety Report 25822769 (Version 1)
Quarter: 2025Q3

REPORT INFORMATION
  Report Type: Report from Study
  Country: US (occurrence: US)
  Receive Date: 20250919
  Receipt Date: 20250919
  Transmission Date: 20251020
  Serious: No
  Sender: SUNOVION
  Company Number: US-SMPA-2025SPA011678

PATIENT
  Age: 63 Year
  Sex: Male

DRUGS (10)
  1. ORGOVYX [Suspect]
     Active Substance: RELUGOLIX
     Indication: Prostate cancer
     Route: 048
  2. ORGOVYX [Suspect]
     Active Substance: RELUGOLIX
     Route: 048
  3. ACETAMINOPHEN [Concomitant]
     Active Substance: ACETAMINOPHEN
  4. CELECOXIB [Concomitant]
     Active Substance: CELECOXIB
  5. GABAPENTIN [Concomitant]
     Active Substance: GABAPENTIN
  6. ACETAMINOPHEN\HYDROCODONE [Concomitant]
     Active Substance: ACETAMINOPHEN\HYDROCODONE
  7. HYDROMORPHONE [Concomitant]
     Active Substance: HYDROMORPHONE
  8. TAMSULOSIN [Concomitant]
     Active Substance: TAMSULOSIN
  9. TIZANIDINE [Concomitant]
     Active Substance: TIZANIDINE
  10. TRAMADOL [Concomitant]
     Active Substance: TRAMADOL

REACTIONS (2)
  - Vitreous floaters [Unknown]
  - Hot flush [Unknown]
